FAERS Safety Report 20557859 (Version 1)
Quarter: 2022Q1

REPORT INFORMATION
  Report Type: Spontaneous
  Country: US (occurrence: US)
  Receive Date: 20220307
  Receipt Date: 20220307
  Transmission Date: 20220424
  Serious: No
  Sender: FDA-Public Use
  Company Number: US-BAXTER-2022BAX004737

PATIENT
  Sex: Male
  Weight: 84 kg

DRUGS (1)
  1. CLINOLIPID [Suspect]
     Active Substance: OLIVE OIL\SOYBEAN OIL
     Indication: Product used for unknown indication
     Dosage: 150 GRAMS, DAILY (APPROXIMATELY 1.8 GRAM (GM)/KILOGRAM (KG)/DAY)
     Route: 065

REACTIONS (2)
  - Jaundice [Unknown]
  - Liver function test increased [Unknown]
